FAERS Safety Report 24378000 (Version 1)
Quarter: 2024Q3

REPORT INFORMATION
  Report Type: Spontaneous
  Country: SG (occurrence: SG)
  Receive Date: 20240930
  Receipt Date: 20240930
  Transmission Date: 20241017
  Serious: Yes (Death, Hospitalization, Other)
  Sender: Steriscience PTE
  Company Number: SG-STERISCIENCE B.V.-2024-ST-001484

PATIENT
  Age: 50 Year
  Sex: Female

DRUGS (12)
  1. MEROPENEM [Suspect]
     Active Substance: MEROPENEM
     Indication: Necrotising fasciitis
     Dosage: UNK
     Route: 042
  2. MEROPENEM [Suspect]
     Active Substance: MEROPENEM
     Indication: Klebsiella infection
  3. VANCOMYCIN [Suspect]
     Active Substance: VANCOMYCIN
     Indication: Klebsiella infection
     Dosage: UNK
     Route: 065
  4. VANCOMYCIN [Suspect]
     Active Substance: VANCOMYCIN
     Indication: Necrotising fasciitis
  5. CEFTAZIDIME [Suspect]
     Active Substance: CEFTAZIDIME
     Indication: Necrotising fasciitis
     Dosage: UNK
     Route: 042
  6. CEFTAZIDIME [Suspect]
     Active Substance: CEFTAZIDIME
     Indication: Klebsiella infection
  7. PENICILLIN G [Suspect]
     Active Substance: PENICILLIN G
     Indication: Klebsiella infection
     Dosage: UNK
     Route: 042
  8. PENICILLIN G [Suspect]
     Active Substance: PENICILLIN G
     Indication: Necrotising fasciitis
  9. AUGMENTIN [Suspect]
     Active Substance: AMOXICILLIN\CLAVULANATE POTASSIUM
     Indication: Klebsiella infection
     Dosage: UNK
     Route: 042
  10. AUGMENTIN [Suspect]
     Active Substance: AMOXICILLIN\CLAVULANATE POTASSIUM
     Indication: Necrotising fasciitis
  11. CLINDAMYCIN [Concomitant]
     Active Substance: CLINDAMYCIN
     Indication: Klebsiella infection
     Dosage: UNK
     Route: 042
  12. CLINDAMYCIN [Concomitant]
     Active Substance: CLINDAMYCIN
     Indication: Necrotising fasciitis

REACTIONS (5)
  - Condition aggravated [Fatal]
  - Septic shock [Fatal]
  - Disseminated intravascular coagulation [Fatal]
  - Multiple organ dysfunction syndrome [Fatal]
  - Ventricular tachycardia [Fatal]
